FAERS Safety Report 5850919-X (Version None)
Quarter: 2008Q3

REPORT INFORMATION
  Report Type: 
  Country: None (occurrence: None)
  Receive Date: 20080818
  Receipt Date: 20080806
  Transmission Date: 20090109
  Serious: Yes (Other)
  Sender: FDA-Public Use
  Company Number: TRP_05851_2008

PATIENT
  Sex: Female

DRUGS (8)
  1. AMPHOTERICIN B FOR INJECTION [Suspect]
     Indication: SYSTEMIC MYCOSIS
     Dosage: DF, INTRAVENOUS(NOT OTHERWISE SPECIFIED, 1/3 DOSE; INTRAVENOUS (NOT SPECIFIED)
     Route: 042
     Dates: start: 20080603, end: 20080603
  2. PRONISON [Concomitant]
  3. RANITIDINE [Concomitant]
  4. ANTACID TAB [Concomitant]
  5. CO-TRIMOXAZOLE [Concomitant]
  6. MICONAZOLE [Concomitant]
  7. MEROPENEM [Concomitant]
  8. VANCOMYCIN HYDROCHLORIDE [Concomitant]

REACTIONS (3)
  - CHILLS [None]
  - HEADACHE [None]
  - MALAISE [None]
